FAERS Safety Report 21361787 (Version 4)
Quarter: 2022Q4

REPORT INFORMATION
  Report Type: Spontaneous
  Country: JP (occurrence: None)
  Receive Date: 20220922
  Receipt Date: 20221214
  Transmission Date: 20230113
  Serious: Yes (Hospitalization, Disabling)
  Sender: FDA-Public Use
  Company Number: 2022A319754

PATIENT
  Age: 62 Year
  Sex: Female
  Weight: 57 kg

DRUGS (14)
  1. FASENRA [Suspect]
     Active Substance: BENRALIZUMAB
     Indication: Asthma
     Route: 058
     Dates: start: 20220419, end: 20220712
  2. PREDNISOLONE [Concomitant]
     Active Substance: PREDNISOLONE
     Indication: Asthma
     Route: 048
     Dates: start: 20131106
  3. FAMOTIDINE [Concomitant]
     Active Substance: FAMOTIDINE
     Indication: Prophylaxis
     Route: 048
     Dates: start: 20160823, end: 20220912
  4. MONTELUKAST [Concomitant]
     Active Substance: MONTELUKAST SODIUM
     Indication: Asthma
     Route: 048
     Dates: start: 20170331, end: 20220907
  5. CARBOCYSTEINE [Concomitant]
     Active Substance: CARBOCYSTEINE
     Route: 048
     Dates: end: 20220712
  6. SULFAMETHOXAZOLE\TRIMETHOPRIM [Concomitant]
     Active Substance: SULFAMETHOXAZOLE\TRIMETHOPRIM
     Indication: Prophylaxis
     Dosage: SULFAMETHOXAZOLE 400 MG
     Route: 048
     Dates: start: 20180413, end: 20220907
  7. SPIRIVA [Concomitant]
     Active Substance: TIOTROPIUM BROMIDE MONOHYDRATE
     Indication: Asthma
     Route: 055
     Dates: start: 20161220
  8. ALENDRONATE [Concomitant]
     Active Substance: ALENDRONATE SODIUM
     Indication: Prophylaxis
     Dosage: EVERY SATURDAY
     Route: 048
     Dates: start: 20180515, end: 20220907
  9. FLUTICASONE PROPIONATE\FORMOTEROL FUMARATE [Concomitant]
     Active Substance: FLUTICASONE PROPIONATE\FORMOTEROL FUMARATE
     Indication: Asthma
     Route: 055
     Dates: start: 20150219
  10. BILASTINE [Concomitant]
     Active Substance: BILASTINE
     Indication: Rhinitis allergic
     Route: 048
     Dates: start: 20190208, end: 20220907
  11. CODEINE [Concomitant]
     Active Substance: CODEINE
     Route: 048
  12. FLUTICASONE FUROATE [Concomitant]
     Active Substance: FLUTICASONE FUROATE
     Dosage: TO BOTH NASAL CAVITIES
     Route: 045
  13. DIQUAFOSOL TETRASODIUM [Concomitant]
     Active Substance: DIQUAFOSOL TETRASODIUM
     Dosage: DOSE UNKNOWN, BOTH EYES
     Route: 047
     Dates: start: 20220517
  14. HYALURONATE SODIUM [Concomitant]
     Active Substance: HYALURONATE SODIUM
     Dosage: DOSE UNKNOWN, BOTH EYES
     Route: 047
     Dates: start: 20220517

REACTIONS (3)
  - Hepatitis acute [Recovered/Resolved with Sequelae]
  - Hepatic steatosis [Not Recovered/Not Resolved]
  - Drug ineffective [Unknown]

NARRATIVE: CASE EVENT DATE: 20220815
